FAERS Safety Report 13597273 (Version 1)
Quarter: 2017Q2

REPORT INFORMATION
  Report Type: Spontaneous
  Country: US (occurrence: US)
  Receive Date: 20170531
  Receipt Date: 20170531
  Transmission Date: 20170830
  Serious: No
  Sender: FDA-Public Use
  Company Number: US-GLAXOSMITHKLINE-US2017080595

PATIENT
  Age: 72 Year
  Sex: Female

DRUGS (15)
  1. BIOTIN [Concomitant]
     Active Substance: BIOTIN
  2. HYDROXYZINE [Concomitant]
     Active Substance: HYDROXYZINE HYDROCHLORIDE
  3. REQUIP [Concomitant]
     Active Substance: ROPINIROLE HYDROCHLORIDE
  4. TOPAMAX [Concomitant]
     Active Substance: TOPIRAMATE
  5. IRON [Concomitant]
     Active Substance: IRON
  6. CYMBALTA [Concomitant]
     Active Substance: DULOXETINE HYDROCHLORIDE
  7. HYDROCODONE/ACETAMINOPHEN [Concomitant]
     Active Substance: ACETAMINOPHEN\HYDROCODONE
  8. NEXIUM [Concomitant]
     Active Substance: ESOMEPRAZOLE MAGNESIUM
  9. SYNTHROID [Concomitant]
     Active Substance: LEVOTHYROXINE SODIUM
  10. BREO ELLIPTA [Suspect]
     Active Substance: FLUTICASONE FUROATE\VILANTEROL TRIFENATATE
     Indication: OXYGEN SATURATION DECREASED
     Dosage: 1 PUFF(S), QD
     Route: 055
     Dates: start: 201704
  11. EVISTA [Concomitant]
     Active Substance: RALOXIFENE HYDROCHLORIDE
  12. EVOXAC [Concomitant]
     Active Substance: CEVIMELINE HYDROCHLORIDE
     Dosage: UNK
  13. PREDNISONE. [Concomitant]
     Active Substance: PREDNISONE
     Dosage: UNK
  14. SINGULAIR [Concomitant]
     Active Substance: MONTELUKAST SODIUM
  15. ZOCOR [Concomitant]
     Active Substance: SIMVASTATIN

REACTIONS (2)
  - Dysphonia [Not Recovered/Not Resolved]
  - Product use in unapproved indication [Unknown]

NARRATIVE: CASE EVENT DATE: 201704
